FAERS Safety Report 6832048-1 (Version None)
Quarter: 2010Q3

REPORT INFORMATION
  Report Type: 
  Country: None (occurrence: None)
  Receive Date: 20100712
  Receipt Date: 20100707
  Transmission Date: 20110219
  Serious: Yes (Hospitalization)
  Sender: FDA-Public Use
  Company Number: US-BRISTOL-MYERS SQUIBB COMPANY-15081425

PATIENT
  Age: 70 Year
  Sex: Male
  Weight: 62 kg

DRUGS (17)
  1. CARBOPLATIN [Suspect]
     Indication: NON-SMALL CELL LUNG CANCER
     Dosage: DF=AUC RECENT INF ON 18FEB10
     Route: 042
     Dates: start: 20091217, end: 20100218
  2. PEMETREXED DISODIUM [Suspect]
     Indication: NON-SMALL CELL LUNG CANCER
     Dosage: REGIMEN 1:17-DEC-2009 TO ONGOING, 2 REGIMEN:11MAR10 TO 15APR10=36DAYS
     Route: 042
     Dates: start: 20091217, end: 20100218
  3. BEVACIZUMAB [Suspect]
     Indication: NON-SMALL CELL LUNG CANCER
     Dosage: REGIMEN 1:17-DEC-2009 TO ONGOING, 2 REGIMEN:11MAR10 TO 15APR10=36DAYS
     Route: 042
     Dates: start: 20091217, end: 20100218
  4. FOLIC ACID [Concomitant]
     Dates: start: 20091023
  5. CYANOCOBALAMIN-ZINC TANNATE COMPLEX [Concomitant]
     Dates: start: 20091209
  6. LISINOPRIL [Concomitant]
  7. AMLODIPINE [Concomitant]
  8. SIMVASTATIN [Concomitant]
  9. MEGACE [Concomitant]
     Dates: start: 20091209
  10. CALCIUM [Concomitant]
     Dates: start: 20091023
  11. VICODIN [Concomitant]
     Dates: start: 20091023
  12. COMPAZINE [Concomitant]
     Dates: start: 20091217
  13. NEULASTA [Concomitant]
     Dates: start: 20091218
  14. WELLBUTRIN [Concomitant]
     Dates: start: 20100128
  15. SLO-MAG [Concomitant]
     Dates: start: 20100107
  16. KYTRIL [Concomitant]
     Dates: start: 20091217
  17. DEXAMETHASONE ACETATE [Concomitant]
     Dates: start: 20091216

REACTIONS (5)
  - ANAEMIA [None]
  - DEHYDRATION [None]
  - DYSPHAGIA [None]
  - MALNUTRITION [None]
  - PNEUMONIA [None]
